FAERS Safety Report 12560116 (Version 1)
Quarter: 2016Q3

REPORT INFORMATION
  Report Type: Spontaneous
  Country: US (occurrence: None)
  Receive Date: 20160714
  Receipt Date: 20160714
  Transmission Date: 20161109
  Serious: Yes (Hospitalization)
  Sender: FDA-Public Use
  Company Number: None

PATIENT
  Age: 75 Year
  Sex: Male
  Weight: 88.6 kg

DRUGS (1)
  1. ZOLEDRONIC [Suspect]
     Active Substance: ZOLEDRONIC ACID
     Indication: OSTEOPOROSIS
     Dosage: 5 MG OTHER IV
     Route: 042
     Dates: start: 20101108, end: 20101108

REACTIONS (8)
  - Rash [None]
  - Oedema peripheral [None]
  - Pyrexia [None]
  - Confusional state [None]
  - Delirium [None]
  - Dyskinesia [None]
  - Erythema [None]
  - Swelling [None]

NARRATIVE: CASE EVENT DATE: 20101116
